FAERS Safety Report 8221593-2 (Version None)
Quarter: 2012Q1

REPORT INFORMATION
  Report Type: 
  Country: None (occurrence: None)
  Receive Date: 20120320
  Receipt Date: 20120313
  Transmission Date: 20120608
  Serious: Yes (Other)
  Sender: FDA-Public Use
  Company Number: US-ASTRAZENECA-2012SE17165

PATIENT
  Sex: Female

DRUGS (1)
  1. SEROQUEL [Suspect]
     Route: 048

REACTIONS (5)
  - MUSCULAR WEAKNESS [None]
  - ARTHRITIS [None]
  - INCORRECT DOSE ADMINISTERED [None]
  - CARDIOVASCULAR DISORDER [None]
  - MALAISE [None]
